FAERS Safety Report 6691632-9 (Version None)
Quarter: 2010Q2

REPORT INFORMATION
  Report Type: 
  Country: None (occurrence: None)
  Receive Date: 20100422
  Receipt Date: 20091021
  Transmission Date: 20101027
  Serious: No
  Sender: FDA-Public Use
  Company Number: US-ASTRAZENECA-2009SE21539

PATIENT
  Age: 81 Year
  Sex: Male
  Weight: 71.2 kg

DRUGS (5)
  1. TOPROL-XL [Suspect]
     Route: 048
  2. AVAPRO [Concomitant]
  3. PLAVIX [Concomitant]
  4. ASPIRIN [Concomitant]
  5. VYTORIN [Concomitant]

REACTIONS (2)
  - BLOOD PRESSURE INCREASED [None]
  - HEART RATE DECREASED [None]
